FAERS Safety Report 8005585-4 (Version None)
Quarter: 2011Q4

REPORT INFORMATION
  Report Type: 
  Country: None (occurrence: None)
  Receive Date: 20111223
  Receipt Date: 20111216
  Transmission Date: 20120403
  Serious: Yes (Other)
  Sender: FDA-Public Use
  Company Number: JP-JNJFOC-20111207464

PATIENT
  Age: 88 Year
  Sex: Female

DRUGS (7)
  1. ATELEC [Concomitant]
     Route: 048
  2. ALFAROL [Concomitant]
     Route: 048
  3. URSO 250 [Concomitant]
     Route: 048
  4. MAGMITT [Suspect]
     Indication: PRODUCT USED FOR UNKNOWN INDICATION
     Route: 048
  5. TRAMADOL HYDROCHLORIDE/ACETAMINOPHEN [Suspect]
     Indication: PAIN
     Route: 048
     Dates: start: 20111101
  6. LANSOPRAZOLE [Suspect]
     Indication: PRODUCT USED FOR UNKNOWN INDICATION
     Route: 065
  7. CELECOXIB [Concomitant]
     Route: 048

REACTIONS (2)
  - AMMONIA INCREASED [None]
  - BRADYCARDIA [None]
